FAERS Safety Report 17894751 (Version 1)
Quarter: 2020Q2

REPORT INFORMATION
  Report Type: Spontaneous
  Country: US (occurrence: US)
  Receive Date: 20200613
  Receipt Date: 20200613
  Transmission Date: 20200714
  Serious: Yes (Other)
  Sender: FDA-Public Use
  Company Number: None

PATIENT
  Age: 51 Year
  Sex: Female
  Weight: 76 kg

DRUGS (9)
  1. CEFEPIME [Concomitant]
     Active Substance: CEFEPIME HYDROCHLORIDE
     Dates: start: 20200610
  2. NS [Concomitant]
     Active Substance: SODIUM CHLORIDE
     Dates: start: 20200610
  3. LACTOBACILLUS [Concomitant]
     Active Substance: LACTOBACILLUS ACIDOPHILUS
     Dates: start: 20200611
  4. APAP 650MG [Concomitant]
     Dates: start: 20200610
  5. KBICARB/KCITRATE [Concomitant]
     Dates: start: 20200611
  6. REMDESIVIR. [Suspect]
     Active Substance: REMDESIVIR
     Indication: COVID-19
     Dosage: ?          OTHER FREQUENCY:LOAD;?
     Route: 041
     Dates: start: 20200611, end: 20200612
  7. LEVOFLOXACIN 750MG IV [Concomitant]
     Dates: start: 20200610
  8. GUAIFENESIN/DXM [Concomitant]
     Dates: start: 20200611
  9. ENOXAPARIN 40MG BID [Concomitant]
     Dates: start: 20200611

REACTIONS (1)
  - Liver function test increased [None]

NARRATIVE: CASE EVENT DATE: 20200612
